FAERS Safety Report 19190398 (Version 5)
Quarter: 2023Q1

REPORT INFORMATION
  Report Type: Spontaneous
  Country: JP (occurrence: JP)
  Receive Date: 20210428
  Receipt Date: 20230215
  Transmission Date: 20230418
  Serious: Yes (Death)
  Sender: FDA-Public Use
  Company Number: JP-JNJFOC-20210452049

PATIENT
  Age: 1 Year
  Sex: Female
  Weight: 4.9 kg

DRUGS (20)
  1. UPTRAVI [Suspect]
     Active Substance: SELEXIPAG
     Indication: Pulmonary arterial hypertension
     Dosage: 0.02 MG (0.01 MG/12 HOURS)
     Route: 048
     Dates: start: 20190719, end: 20190730
  2. UPTRAVI [Suspect]
     Active Substance: SELEXIPAG
     Dosage: 0.06 MG (0.03 MG/12 HOURS)
     Route: 048
     Dates: start: 20190731, end: 20210323
  3. REVATIO [Concomitant]
     Active Substance: SILDENAFIL CITRATE
     Indication: Pulmonary arterial hypertension
     Dates: end: 20210323
  4. AMBRISENTAN [Concomitant]
     Active Substance: AMBRISENTAN
     Indication: Pulmonary arterial hypertension
     Dates: end: 20210323
  5. FUROSEMIDE [Concomitant]
     Active Substance: FUROSEMIDE
     Dates: end: 20210323
  6. SPIRONOLACTONE [Concomitant]
     Active Substance: SPIRONOLACTONE
     Dates: end: 20210323
  7. ENALAPRIL [Concomitant]
     Active Substance: ENALAPRIL
     Dates: end: 20210323
  8. URSO [Concomitant]
     Active Substance: URSODIOL
     Indication: Prophylaxis
     Dates: end: 20210323
  9. TIZANIDINE [Concomitant]
     Active Substance: TIZANIDINE
     Indication: Trisomy 21
     Dates: end: 20210323
  10. PHENOBARBITAL [Concomitant]
     Active Substance: PHENOBARBITAL
     Indication: Trisomy 21
     Dates: end: 20210323
  11. FAMOTIDINE [Concomitant]
     Active Substance: FAMOTIDINE
     Indication: Prophylaxis
     Dates: end: 20210323
  12. CLARITHROMYCIN [Concomitant]
     Active Substance: CLARITHROMYCIN
     Indication: Prophylaxis
     Dates: end: 20200310
  13. HERBALS [Concomitant]
     Active Substance: HERBALS
     Indication: Prophylaxis
     Dates: end: 20200214
  14. MIYA-BM [Concomitant]
     Active Substance: CLOSTRIDIUM BUTYRICUM SPORES STRAIN M-55
     Indication: Prophylaxis
     Dates: end: 20210323
  15. CARBOCYSTEINE [Concomitant]
     Active Substance: CARBOCYSTEINE
     Dates: end: 20210323
  16. AMBROXOL HYDROCHLORIDE [Concomitant]
     Active Substance: AMBROXOL HYDROCHLORIDE
     Dates: end: 20210323
  17. POTASSIUM GLUCONATE [Concomitant]
     Active Substance: POTASSIUM GLUCONATE
     Indication: Electrolyte imbalance
     Dates: start: 20190723, end: 20200309
  18. SULFAMETHOXAZOLE\TRIMETHOPRIM [Concomitant]
     Active Substance: SULFAMETHOXAZOLE\TRIMETHOPRIM
     Indication: Prophylaxis
     Dates: start: 20200309, end: 20210323
  19. ALFAROL [Concomitant]
     Active Substance: ALFACALCIDOL
     Indication: Prophylaxis
     Dates: start: 20200309, end: 20210323
  20. LEVOTHYROXINE SODIUM [Concomitant]
     Active Substance: LEVOTHYROXINE SODIUM
     Indication: Trisomy 21
     Dates: start: 20201205, end: 20210323

REACTIONS (2)
  - Pulmonary arterial hypertension [Fatal]
  - Off label use [Unknown]

NARRATIVE: CASE EVENT DATE: 20210323
